FAERS Safety Report 8006212-2 (Version None)
Quarter: 2011Q4

REPORT INFORMATION
  Report Type: 
  Country: None (occurrence: None)
  Receive Date: 20111226
  Receipt Date: 20111215
  Transmission Date: 20120403
  Serious: Yes (Other)
  Sender: FDA-Public Use
  Company Number: US-NOVOPROD-339785

PATIENT

DRUGS (1)
  1. VAGIFEM [Suspect]
     Indication: VULVOVAGINAL DRYNESS
     Dosage: 25 A?G, UNK
     Route: 067
     Dates: start: 20060101, end: 20111101

REACTIONS (1)
  - OPTIC ISCHAEMIC NEUROPATHY [None]
